FAERS Safety Report 15627104 (Version 1)
Quarter: 2018Q4

REPORT INFORMATION
  Report Type: Spontaneous
  Country: US (occurrence: US)
  Receive Date: 20181116
  Receipt Date: 20181116
  Transmission Date: 20190205
  Serious: Yes (Life-Threatening, Other)
  Sender: FDA-Public Use
  Company Number: None

PATIENT
  Age: 27 Year
  Sex: Female
  Weight: 47.25 kg

DRUGS (1)
  1. SODIUM FERRIC GLUCONATE COMPLEX (INTRAVENOUS ROUTE) [Suspect]
     Active Substance: SODIUM FERRIC GLUCONATE COMPLEX
     Indication: IRON DEFICIENCY ANAEMIA
     Route: 042
     Dates: start: 20180511, end: 20180511

REACTIONS (4)
  - Product substitution issue [None]
  - Urticaria [None]
  - Anaphylactic reaction [None]
  - Cardiac disorder [None]

NARRATIVE: CASE EVENT DATE: 20180511
